FAERS Safety Report 4590652-8 (Version None)
Quarter: 2005Q1

REPORT INFORMATION
  Report Type: 
  Country: None (occurrence: None)
  Receive Date: 20050218
  Receipt Date: 20050218
  Transmission Date: 20050727
  Serious: No
  Sender: FDA-Public Use
  Company Number: None

PATIENT
  Age: 68 Year
  Sex: Female
  Weight: 52.9 kg

DRUGS (7)
  1. DAPTOMYCIN [Suspect]
     Indication: STAPHYLOCOCCAL INFECTION
     Dosage: 225MG  DAILY  INTRAVENOUS
     Route: 042
     Dates: start: 20041119, end: 20041130
  2. AMIODARONE  200MG [Suspect]
     Indication: ATRIAL FIBRILLATION
     Dosage: 100MG  DAILY @ 0900  ORAL
     Route: 048
     Dates: start: 20041119, end: 20041130
  3. ASPIRIN [Concomitant]
  4. ATORVASTATIN CALCIUM [Concomitant]
  5. CLOPIDOGREL [Concomitant]
  6. DIPHENDYRAMINE [Concomitant]
  7. HYDROXYCHLOROQUINE SULFATE [Concomitant]

REACTIONS (3)
  - DRUG INTERACTION [None]
  - ELECTROCARDIOGRAM QT CORRECTED INTERVAL PROLONGED [None]
  - VENTRICULAR TACHYCARDIA [None]
